FAERS Safety Report 8177117-1 (Version None)
Quarter: 2012Q1

REPORT INFORMATION
  Report Type: 
  Country: None (occurrence: None)
  Receive Date: 20120301
  Receipt Date: 20120229
  Transmission Date: 20120608
  Serious: Yes (Life-Threatening)
  Sender: FDA-Public Use
  Company Number: US-GLAXOSMITHKLINE-A0968054A

PATIENT
  Age: 63 Year
  Sex: Male
  Weight: 126.6 kg

DRUGS (9)
  1. DOCETAXEL [Suspect]
     Indication: PROSTATE CANCER
     Dates: start: 20110831
  2. VOTRIENT [Suspect]
     Indication: PROSTATE CANCER
     Dates: start: 20110901
  3. IBUPROFEN [Concomitant]
     Route: 048
  4. FERROUS SULFATE TAB [Concomitant]
     Route: 048
  5. OXYCODONE HCL [Concomitant]
     Route: 048
  6. LISINOPRIL [Concomitant]
     Route: 048
  7. FISH OIL [Concomitant]
     Route: 048
  8. PREDNISONE [Suspect]
     Indication: PROSTATE CANCER
     Dosage: 10MG PER DAY
     Route: 048
  9. MULTI-VITAMIN [Concomitant]
     Route: 048

REACTIONS (1)
  - PULMONARY EMBOLISM [None]
